FAERS Safety Report 6056668-X (Version None)
Quarter: 2009Q1

REPORT INFORMATION
  Report Type: 
  Country: None (occurrence: None)
  Receive Date: 20090129
  Receipt Date: 20090122
  Transmission Date: 20090719
  Serious: Yes (Hospitalization)
  Sender: FDA-Public Use
  Company Number: JP-EISAI MEDIAL RESEARCH-E3810-02502-SPO-JP

PATIENT
  Age: 65 Year
  Sex: Female
  Weight: 42.9 kg

DRUGS (5)
  1. RABEPRAZOLE SODIUM [Suspect]
     Indication: GASTRIC ULCER
     Route: 048
     Dates: start: 20081114
  2. MAALOX [Concomitant]
     Indication: GASTRIC ULCER
     Route: 048
     Dates: start: 20081114
  3. NOVORAPID [Concomitant]
     Indication: DIABETES MELLITUS
     Route: 058
     Dates: start: 20081114
  4. STARSIS [Concomitant]
     Indication: DIABETES MELLITUS
     Route: 048
     Dates: start: 20081114
  5. VOGLIBOSE [Concomitant]
     Indication: DIABETES MELLITUS
     Route: 048
     Dates: start: 20081114

REACTIONS (1)
  - COLITIS COLLAGENOUS [None]
